FAERS Safety Report 10247712 (Version 1)
Quarter: 2014Q2

REPORT INFORMATION
  Report Type: Spontaneous
  Country: GB (occurrence: GB)
  Receive Date: 20140619
  Receipt Date: 20140619
  Transmission Date: 20141212
  Serious: Yes (Other)
  Sender: FDA-Public Use
  Company Number: PHHY2014GB071787

PATIENT
  Age: 85 Year
  Sex: Female

DRUGS (6)
  1. ALENDRONIC ACID [Suspect]
     Indication: OSTEOPOROSIS
     Route: 048
     Dates: start: 20131106
  2. ASPIRIN [Concomitant]
     Dosage: 75 MG, QD
  3. CALCIUM AND VITAMIN D [Concomitant]
  4. GTN [Concomitant]
  5. METOPROLOL [Concomitant]
     Dosage: 12.5 MG, BID
  6. SIMVASTATIN [Concomitant]
     Dosage: 20 MG, QD

REACTIONS (5)
  - Hyperhidrosis [Unknown]
  - Dizziness [Unknown]
  - Nausea [Unknown]
  - Joint swelling [Unknown]
  - Malaise [Unknown]
